FAERS Safety Report 9993239 (Version 2)
Quarter: 2014Q1

REPORT INFORMATION
  Report Type: Spontaneous
  Country: US (occurrence: US)
  Receive Date: 20140310
  Receipt Date: 20140310
  Transmission Date: 20141002
  Serious: No
  Sender: FDA-Public Use
  Company Number: US-BAUSCH-BL-2013-005513

PATIENT
  Age: 48 Year
  Sex: Male

DRUGS (5)
  1. DESMOPRESSIN ACETATE NASAL SOLUTION 0.01% [Suspect]
     Indication: DIABETES INSIPIDUS
     Dosage: 1 SPRAY; TWICE DAILY; RIGHT NARE
     Route: 045
     Dates: start: 2000
  2. DESMOPRESSIN ACETATE NASAL SOLUTION 0.01% [Suspect]
     Dosage: 1 SPRAY; TWICE DAILY; LEFT NARE
     Route: 045
     Dates: start: 2000
  3. METFORMIN [Concomitant]
     Indication: DIABETES INSIPIDUS
  4. PREDNISONE [Concomitant]
  5. SYNTHROID [Concomitant]
     Indication: HYPOPITUITARISM

REACTIONS (6)
  - Drug ineffective [Not Recovered/Not Resolved]
  - Incorrect dose administered [Not Recovered/Not Resolved]
  - Parosmia [Unknown]
  - Muscle twitching [Unknown]
  - Muscular weakness [Unknown]
  - Nasal congestion [Unknown]
